FAERS Safety Report 15797129 (Version 1)
Quarter: 2019Q1

REPORT INFORMATION
  Report Type: Spontaneous
  Country: NL (occurrence: NL)
  Receive Date: 20190108
  Receipt Date: 20190108
  Transmission Date: 20190417
  Serious: Yes (Other)
  Sender: FDA-Public Use
  Company Number: NL-TEVA-2019-NL-995640

PATIENT
  Age: 57 Year
  Sex: Female
  Weight: 68 kg

DRUGS (2)
  1. ELIQUIS /APIXABAN 5 MG BLOEDVERDUNNER [Concomitant]
  2. METOPROLOL TABLET MET GEREGULEERDE AFGIFTE, 100 MG (MILLIGRAM) [Suspect]
     Active Substance: METOPROLOL
     Indication: ATRIAL FIBRILLATION
     Dosage: 100 MG, AFTER 1 MONTH BACK TO 50 MG AT MY REQUEST CONCERNING SPORTS
     Dates: start: 20170421

REACTIONS (3)
  - Fatigue [Recovered/Resolved]
  - Pulmonary oedema [Recovered/Resolved]
  - Weight increased [Recovered/Resolved]

NARRATIVE: CASE EVENT DATE: 20170422
